FAERS Safety Report 8490438-8 (Version None)
Quarter: 2012Q3

REPORT INFORMATION
  Report Type: 
  Country: None (occurrence: None)
  Receive Date: 20120705
  Receipt Date: 20120626
  Transmission Date: 20120928
  Serious: Yes (Death, Other)
  Sender: FDA-Public Use
  Company Number: BR-SANOFI-AVENTIS-2012SA045827

PATIENT
  Age: 80 Year
  Sex: Male
  Weight: 92 kg

DRUGS (5)
  1. LANTUS [Suspect]
     Indication: TYPE 2 DIABETES MELLITUS
     Dosage: START DATE:ABOUT 13YRS AGO,DOSE: 25 OR 50IU DAILY ACCORDING TO BLOOD GLUCOSE,FORM: CARTRIDGE.
     Route: 058
     Dates: start: 19990101, end: 20120620
  2. OLCADIL [Concomitant]
     Dates: end: 20120620
  3. CLIKSTAR [Suspect]
     Indication: TYPE 2 DIABETES MELLITUS
     Dates: start: 19990101, end: 20120620
  4. METFORMIN HCL [Concomitant]
     Dates: end: 20120620
  5. LASIX [Concomitant]
     Dates: end: 20120620

REACTIONS (5)
  - DIABETIC NEUROPATHY [None]
  - ISCHAEMIC STROKE [None]
  - DEATH [None]
  - SPINAL DISORDER [None]
  - HALLUCINATION [None]
